FAERS Safety Report 9390876 (Version 1)
Quarter: 2013Q3

REPORT INFORMATION
  Report Type: Spontaneous
  Country: US (occurrence: None)
  Receive Date: 20130705
  Receipt Date: 20130705
  Transmission Date: 20140515
  Serious: Yes (Disabling, Other)
  Sender: FDA-Public Use
  Company Number: None

PATIENT
  Age: 63 Year
  Sex: Female
  Weight: 108.86 kg

DRUGS (7)
  1. BYDUREON [Suspect]
     Indication: TYPE 2 DIABETES MELLITUS
     Dosage: STRENGTH:  2 MG?QUANTITY:  1 INJ?FREQUENCY:  ONCE WEEKLY ?HOW:  INJECTION?
     Dates: start: 20130513, end: 20130617
  2. METFORMIN ER [Concomitant]
  3. ALTACE [Concomitant]
  4. NORVASC [Concomitant]
  5. ZOCOR [Concomitant]
  6. SYNTHROID [Concomitant]
  7. VIT D [Concomitant]

REACTIONS (6)
  - Dizziness [None]
  - Nausea [None]
  - Abdominal pain [None]
  - Aphagia [None]
  - Fluid intake reduced [None]
  - Injection site cellulitis [None]
